FAERS Safety Report 5234263-X (Version None)
Quarter: 2007Q1

REPORT INFORMATION
  Report Type: 
  Country: None (occurrence: None)
  Receive Date: 20070207
  Receipt Date: 20070129
  Transmission Date: 20070707
  Serious: Yes (Hospitalization)
  Sender: FDA-Public Use
  Company Number: 230772K07USA

PATIENT
  Age: 45 Year
  Sex: Female

DRUGS (2)
  1. REBIF [Suspect]
     Dosage: 8.8 MCG, 3 IN 1 WEEK, SUBCUTANEOUS
     Route: 058
  2. TYLENOL (COTYLENOL) [Concomitant]

REACTIONS (1)
  - DIVERTICULITIS [None]
